FAERS Safety Report 25774001 (Version 1)
Quarter: 2025Q3

REPORT INFORMATION
  Report Type: Spontaneous
  Country: US (occurrence: US)
  Receive Date: 20250908
  Receipt Date: 20250908
  Transmission Date: 20251020
  Serious: Yes (Other)
  Sender: NOVO NORDISK
  Company Number: US-NOVOPROD-1513885

PATIENT
  Age: 72 Year
  Sex: Male

DRUGS (6)
  1. RYBELSUS [Suspect]
     Active Substance: SEMAGLUTIDE
     Indication: Type 2 diabetes mellitus
     Route: 048
     Dates: start: 20241123, end: 20241224
  2. RYBELSUS [Suspect]
     Active Substance: SEMAGLUTIDE
     Dates: start: 20250101
  3. RYBELSUS [Suspect]
     Active Substance: SEMAGLUTIDE
  4. RYBELSUS [Suspect]
     Active Substance: SEMAGLUTIDE
     Indication: Type 2 diabetes mellitus
     Dosage: 7 MG, QD
  5. RYBELSUS [Suspect]
     Active Substance: SEMAGLUTIDE
  6. RYBELSUS [Suspect]
     Active Substance: SEMAGLUTIDE

REACTIONS (5)
  - Osteoarthritis [Unknown]
  - Food aversion [Unknown]
  - Weight increased [Unknown]
  - Decreased appetite [Unknown]
  - Inappropriate schedule of product administration [Unknown]

NARRATIVE: CASE EVENT DATE: 20240101
